FAERS Safety Report 18275528 (Version 1)
Quarter: 2020Q3

REPORT INFORMATION
  Report Type: Spontaneous
  Country: US (occurrence: US)
  Receive Date: 20200917
  Receipt Date: 20200917
  Transmission Date: 20201103
  Serious: Yes (Life-Threatening, Hospitalization, Other)
  Sender: FDA-Public Use
  Company Number: US-DRREDDYS-USA/USA/20/0126953

PATIENT
  Age: 76 Year
  Sex: Female
  Weight: 44 kg

DRUGS (1)
  1. HEPARIN SODIUM. [Suspect]
     Active Substance: HEPARIN SODIUM
     Indication: THROMBOSIS PROPHYLAXIS
     Dosage: 341 UNITS/KG/D
     Route: 058

REACTIONS (5)
  - Mental status changes [Recovering/Resolving]
  - Aphasia [Recovering/Resolving]
  - Subdural haematoma [Recovering/Resolving]
  - Cerebral haemorrhage [Recovering/Resolving]
  - Haemorrhage intracranial [Recovering/Resolving]
